FAERS Safety Report 10240816 (Version 1)
Quarter: 2014Q2

REPORT INFORMATION
  Report Type: Spontaneous
  Country: US (occurrence: US)
  Receive Date: 20140617
  Receipt Date: 20140617
  Transmission Date: 20141212
  Serious: No
  Sender: FDA-Public Use
  Company Number: US-B.I. PHARMACEUTICALS,INC./RIDGEFIELD-2014-BI-25760BP

PATIENT
  Sex: Male
  Weight: 77 kg

DRUGS (9)
  1. SPIRIVA [Suspect]
     Indication: CHRONIC OBSTRUCTIVE PULMONARY DISEASE
     Dosage: 18 MCG
     Route: 055
     Dates: start: 2012
  2. ALBUTEROL [Concomitant]
     Indication: CHRONIC OBSTRUCTIVE PULMONARY DISEASE
     Dosage: STRENGTH: 0.083%; DAILY DOSE: 0.332%
     Route: 055
     Dates: start: 2012
  3. VENTOLIN HFA [Concomitant]
     Indication: CHRONIC OBSTRUCTIVE PULMONARY DISEASE
     Dosage: 540 MCG
     Route: 055
     Dates: start: 2012
  4. OMEPRAZOLE [Concomitant]
     Indication: DYSPEPSIA
     Dosage: 40 MG
     Route: 048
     Dates: start: 1995
  5. MIRALAX [Concomitant]
     Indication: CONSTIPATION
     Dosage: FORMUALTION: ORAL SUSPENSION STRENGTH AND DAILY DOSE: 17 GM
     Route: 048
  6. ADVAIR [Concomitant]
     Indication: CHRONIC OBSTRUCTIVE PULMONARY DISEASE
     Dosage: 500 MCG
     Route: 055
  7. DOXAZOSIN [Concomitant]
     Indication: PROSTATOMEGALY
     Dosage: 4 MG
     Route: 048
     Dates: start: 2013
  8. TENORETIC [Concomitant]
     Indication: HYPERTENSION
     Dosage: STRENGTH: 50MG/25MG; DAILY DOSE: 50MG/25MG
     Route: 048
  9. POTASSIUM [Concomitant]
     Indication: SUPPLEMENTATION THERAPY
     Dosage: 40 MEQ
     Route: 048

REACTIONS (1)
  - Visual impairment [Not Recovered/Not Resolved]
